FAERS Safety Report 18208173 (Version 1)
Quarter: 2020Q3

REPORT INFORMATION
  Report Type: Spontaneous
  Country: CN (occurrence: CN)
  Receive Date: 20200828
  Receipt Date: 20200828
  Transmission Date: 20201103
  Serious: Yes (Hospitalization, Other)
  Sender: FDA-Public Use
  Company Number: CN-PFIZER INC-2020331882

PATIENT
  Age: 39 Year
  Sex: Female
  Weight: 47 kg

DRUGS (2)
  1. GLUCOSE [Concomitant]
     Active Substance: DEXTROSE
     Indication: VEHICLE SOLUTION USE
     Dosage: 500 ML, 2X/DAY
     Route: 041
     Dates: start: 20200721, end: 20200724
  2. CYTOSAR [Suspect]
     Active Substance: CYTARABINE
     Indication: ACUTE LEUKAEMIA
     Dosage: 2.5 G, 2X/DAY
     Route: 041
     Dates: start: 20200721, end: 20200724

REACTIONS (1)
  - Myelosuppression [Recovering/Resolving]

NARRATIVE: CASE EVENT DATE: 20200730
